FAERS Safety Report 5221658-3 (Version None)
Quarter: 2007Q1

REPORT INFORMATION
  Report Type: 
  Country: None (occurrence: None)
  Receive Date: 20070129
  Receipt Date: 20070124
  Transmission Date: 20070707
  Serious: Yes (Death, Life-Threatening, Hospitalization)
  Sender: FDA-Public Use
  Company Number: FR-BRISTOL-MYERS SQUIBB COMPANY-13560099

PATIENT
  Age: 73 Year
  Sex: Male
  Weight: 52 kg

DRUGS (13)
  1. HYDREA [Suspect]
     Indication: CHRONIC MYELOID LEUKAEMIA
     Route: 048
     Dates: start: 20061020, end: 20061024
  2. DAFALGAN CAPS 500 MG [Concomitant]
  3. RIVOTRIL [Concomitant]
  4. PLAVIX [Concomitant]
  5. TARDYFERON [Concomitant]
  6. SPECIAFOLDINE [Concomitant]
  7. NEURONTIN [Concomitant]
  8. FONZYLANE [Concomitant]
  9. ACTISKENAN CAPS 10 MG [Concomitant]
  10. PERFALGAN [Concomitant]
  11. ROCEPHIN [Concomitant]
  12. OFLOCET [Concomitant]
  13. ZYLORIC [Concomitant]

REACTIONS (1)
  - DEATH [None]
